FAERS Safety Report 6382813-2 (Version None)
Quarter: 2009Q3

REPORT INFORMATION
  Report Type: 
  Country: None (occurrence: None)
  Receive Date: 20090930
  Receipt Date: 20090921
  Transmission Date: 20100115
  Serious: Yes (Life-Threatening, Other)
  Sender: FDA-Public Use
  Company Number: GB-ELI_LILLY_AND_COMPANY-GB200610000327

PATIENT
  Sex: Male

DRUGS (2)
  1. ZYPREXA [Suspect]
     Indication: SCHIZOPHRENIA
     Dosage: 20 MG, EACH EVENING
     Route: 048
     Dates: start: 20060201
  2. NICORETTE NASAL [Concomitant]
     Indication: NICOTINE DEPENDENCE
     Dosage: UNK, UNKNOWN
     Route: 045

REACTIONS (1)
  - ELECTROCARDIOGRAM QT PROLONGED [None]
